FAERS Safety Report 8490821 (Version 2)
Quarter: 2012Q4

REPORT INFORMATION
  Report Type: 
  Country: US (occurrence: US)
  Receive Date: 20120403
  Receipt Date: 20121011
  Transmission Date: 20130627
  Serious: Yes (Other)
  Sender: FDA-Public Use
  Company Number: US-US-EMD SERONO, INC.-7121871

PATIENT
  Age: 30 Year
  Sex: Female

DRUGS (5)
  1. REBIF [Suspect]
     Indication: MULTIPLE SCLEROSIS
     Route: 058
     Dates: start: 20110727
  2. ROXICODONE [Concomitant]
     Indication: PAIN
     Route: 048
  3. SOMA [Concomitant]
     Indication: PAIN
  4. LYRICA [Concomitant]
     Indication: PAIN
  5. AMBIEN [Concomitant]
     Indication: INSOMNIA

REACTIONS (3)
  - Precancerous cells present [Not Recovered/Not Resolved]
  - Pain in extremity [Not Recovered/Not Resolved]
  - Hypoaesthesia [Not Recovered/Not Resolved]
